FAERS Safety Report 16607250 (Version 3)
Quarter: 2019Q4

REPORT INFORMATION
  Report Type: Spontaneous
  Country: US (occurrence: US)
  Receive Date: 20190722
  Receipt Date: 20191025
  Transmission Date: 20200122
  Serious: Yes (Other)
  Sender: FDA-Public Use
  Company Number: US-INSMED, INC.-US-INS-19-02118

PATIENT
  Age: 90 Year
  Sex: Male

DRUGS (2)
  1. LAMIRA NEBULIZER SYSTEM [Suspect]
     Active Substance: DEVICE
  2. ARIKAYCE [Suspect]
     Active Substance: AMIKACIN
     Indication: MYCOBACTERIAL INFECTION
     Route: 055
     Dates: start: 20190531, end: 20190918

REACTIONS (7)
  - Dysphonia [Unknown]
  - Arthritis [Not Recovered/Not Resolved]
  - Bladder cancer [Unknown]
  - Cough [Not Recovered/Not Resolved]
  - Urinary bladder haemorrhage [Unknown]
  - Epistaxis [Unknown]
  - Diarrhoea [Unknown]

NARRATIVE: CASE EVENT DATE: 2019
